FAERS Safety Report 5932570-6 (Version None)
Quarter: 2008Q4

REPORT INFORMATION
  Report Type: 
  Country: None (occurrence: None)
  Receive Date: 20081028
  Receipt Date: 20081020
  Transmission Date: 20090506
  Serious: Yes (Hospitalization)
  Sender: FDA-Public Use
  Company Number: CA-ASTRAZENECA-2008UW23840

PATIENT
  Age: 62 Year
  Sex: Female

DRUGS (6)
  1. ARIMIDEX [Suspect]
     Indication: BREAST CANCER FEMALE
     Route: 048
     Dates: start: 20070201
  2. CITALOPRAM HYDROBROMIDE [Concomitant]
  3. ASCORBIC ACID [Concomitant]
  4. VITAMIN B COMPLEX 50 [Concomitant]
  5. CALCIUM WITH VITAMIN D [Concomitant]
  6. ATENOLOL [Concomitant]
     Indication: HYPERTENSION

REACTIONS (3)
  - ARTHRALGIA [None]
  - JOINT STIFFNESS [None]
  - MASTECTOMY [None]
